FAERS Safety Report 5978706-2 (Version None)
Quarter: 2008Q4

REPORT INFORMATION
  Report Type: 
  Country: None (occurrence: None)
  Receive Date: 20081204
  Receipt Date: 20081128
  Transmission Date: 20090506
  Serious: Yes (Hospitalization)
  Sender: FDA-Public Use
  Company Number: FR-BAYER-200831833GPV

PATIENT
  Age: 53 Year
  Sex: Male

DRUGS (7)
  1. CIFLOX(CIPROFLOXACIN HYDROCHLORIDE) [Suspect]
     Indication: SEPSIS SYNDROME
     Route: 048
  2. TAZOCILLINE [Suspect]
     Indication: SEPSIS SYNDROME
     Route: 042
  3. VALIUM [Concomitant]
     Indication: ALCOHOL WITHDRAWAL SYNDROME
     Route: 065
  4. VANCOMYCIN HCL [Concomitant]
     Indication: SEPSIS SYNDROME
     Route: 042
  5. AUGMENTIN '125' [Concomitant]
     Indication: PYREXIA
     Route: 065
     Dates: start: 20080430
  6. OFLOXACIN [Concomitant]
     Indication: SEPSIS SYNDROME
     Route: 065
  7. AUGMENTIN '125' [Concomitant]
     Route: 065
     Dates: start: 20080506, end: 20080507

REACTIONS (2)
  - DERMATITIS ALLERGIC [None]
  - DRUG RASH WITH EOSINOPHILIA AND SYSTEMIC SYMPTOMS [None]
